FAERS Safety Report 24660325 (Version 3)
Quarter: 2024Q4

REPORT INFORMATION
  Report Type: Spontaneous
  Country: JP (occurrence: JP)
  Receive Date: 20241125
  Receipt Date: 20241220
  Transmission Date: 20250115
  Serious: Yes (Hospitalization, Disabling, Other)
  Sender: PFIZER
  Company Number: JP-PFIZER INC-PV202400152608

PATIENT
  Age: 81 Year
  Sex: Female
  Weight: 51.9 kg

DRUGS (11)
  1. RHEUMATREX [Suspect]
     Active Substance: METHOTREXATE SODIUM
     Indication: Rheumatoid arthritis
     Dosage: 10 MG, WEEKLY(3 CAPSULES ON MONDAY AND 2 CAPSULES ON TUESDAY)
     Route: 048
     Dates: end: 20241112
  2. CELECOXIB [Concomitant]
     Active Substance: CELECOXIB
     Indication: Pain
     Dosage: 100 MG, 2X/DAY
     Route: 048
  3. REBAMIPIDE [Concomitant]
     Active Substance: REBAMIPIDE
     Indication: Gastrointestinal disorder prophylaxis
     Dosage: 100 MG, 2X/DAY
     Route: 048
  4. EPERISONE HYDROCHLORIDE [Concomitant]
     Active Substance: EPERISONE HYDROCHLORIDE
     Indication: Musculoskeletal stiffness
     Dosage: 50 MG, 2X/DAY
     Route: 048
  5. FOLIC ACID [Concomitant]
     Active Substance: FOLIC ACID
     Dosage: 1 DF/DAY, WEEKLY (ONLY FRIDAY)
     Route: 048
  6. GASTER [Concomitant]
     Active Substance: FAMOTIDINE
     Indication: Prophylaxis
     Dosage: 20 MG, 1X/DAY
     Route: 048
  7. ELIQUIS [Concomitant]
     Active Substance: APIXABAN
     Indication: Cerebral artery embolism
     Dosage: 2.5 MG, 2X/DAY
     Route: 048
  8. FEXOFENADINE [FEXOFENADINE HYDROCHLORIDE] [Concomitant]
     Indication: Hypersensitivity
     Dosage: 60 MG, 2X/DAY
     Route: 048
  9. SODIUM HYALURONATE [Concomitant]
     Active Substance: HYALURONATE SODIUM
     Dosage: UNK
     Route: 031
  10. DIQUAS LX [Concomitant]
     Dosage: UNK
     Route: 031
  11. FLUOROMETHOLONE [Concomitant]
     Active Substance: FLUOROMETHOLONE
     Route: 031

REACTIONS (2)
  - Leukoencephalopathy [Unknown]
  - Cerebral infarction [Unknown]

NARRATIVE: CASE EVENT DATE: 20241111
